FAERS Safety Report 12298629 (Version 1)
Quarter: 2016Q2

REPORT INFORMATION
  Report Type: Spontaneous
  Country: US (occurrence: US)
  Receive Date: 20160425
  Receipt Date: 20160425
  Transmission Date: 20160815
  Serious: No
  Sender: FDA-Public Use
  Company Number: US-AMGEN-USASP2016048335

PATIENT
  Age: 60 Year
  Sex: Female

DRUGS (1)
  1. ENBREL [Suspect]
     Active Substance: ETANERCEPT
     Indication: RHEUMATOID ARTHRITIS
     Dosage: UNK UNK, WEEKLY
     Route: 065
     Dates: start: 2015

REACTIONS (7)
  - Rash [Unknown]
  - Pain [Unknown]
  - Feeling hot [Unknown]
  - Swelling [Unknown]
  - Pyrexia [Unknown]
  - Discomfort [Unknown]
  - Influenza [Unknown]
